FAERS Safety Report 13167079 (Version 1)
Quarter: 2017Q1

REPORT INFORMATION
  Report Type: Spontaneous
  Country: US (occurrence: US)
  Receive Date: 20170130
  Receipt Date: 20170130
  Transmission Date: 20170428
  Serious: No
  Sender: FDA-Public Use
  Company Number: None

PATIENT
  Age: 82 Year
  Sex: Female

DRUGS (7)
  1. IMATINIB MES 400MG NOVARTIS [Suspect]
     Active Substance: IMATINIB MESYLATE
     Indication: CHRONIC MYELOID LEUKAEMIA
     Dosage: 1 TABLET DAILY PO
     Route: 048
     Dates: start: 200611
  2. CALCIUM [Concomitant]
     Active Substance: CALCIUM
  3. ASPIRIN. [Concomitant]
     Active Substance: ASPIRIN
  4. HYDROCHLOROT [Concomitant]
     Active Substance: HYDROCHLOROTHIAZIDE
  5. LYRICA [Concomitant]
     Active Substance: PREGABALIN
  6. LISINOPRIL. [Concomitant]
     Active Substance: LISINOPRIL
  7. GLEEVEC [Concomitant]
     Active Substance: IMATINIB MESYLATE

REACTIONS (1)
  - Hospitalisation [None]
